FAERS Safety Report 4458612-5 (Version None)
Quarter: 2004Q3

REPORT INFORMATION
  Report Type: 
  Country: None (occurrence: None)
  Receive Date: 20040917
  Receipt Date: 20031211
  Transmission Date: 20050211
  Serious: Yes (Other)
  Sender: FDA-Public Use
  Company Number: US-JNJFOC-20030800402

PATIENT
  Age: 38 Year
  Sex: Female
  Weight: 107.5025 kg

DRUGS (10)
  1. TOPAMAX [Suspect]
     Indication: CONVULSION
     Dosage: SEE IMAGE
     Route: 048
     Dates: start: 20030718, end: 20030725
  2. TOPAMAX [Suspect]
     Indication: MIGRAINE PROPHYLAXIS
     Dosage: SEE IMAGE
     Route: 048
     Dates: start: 20030718, end: 20030725
  3. TOPAMAX [Suspect]
     Indication: WEIGHT LOSS POOR
     Dosage: SEE IMAGE
     Route: 048
     Dates: start: 20030718, end: 20030725
  4. TOPAMAX [Suspect]
     Indication: CONVULSION
     Dosage: SEE IMAGE
     Route: 048
     Dates: start: 20030726, end: 20030728
  5. TOPAMAX [Suspect]
     Indication: MIGRAINE PROPHYLAXIS
     Dosage: SEE IMAGE
     Route: 048
     Dates: start: 20030726, end: 20030728
  6. TOPAMAX [Suspect]
     Indication: WEIGHT LOSS POOR
     Dosage: SEE IMAGE
     Route: 048
     Dates: start: 20030726, end: 20030728
  7. EFFEXOR XR [Concomitant]
  8. XANAX [Concomitant]
  9. AVION (ALL OTHER THERAPEUTIC PRODUCTS) [Concomitant]
  10. ALBUTEROL [Concomitant]

REACTIONS (1)
  - ANGLE CLOSURE GLAUCOMA [None]
